FAERS Safety Report 24889421 (Version 1)
Quarter: 2025Q1

REPORT INFORMATION
  Report Type: Spontaneous
  Country: CA (occurrence: CA)
  Receive Date: 20250127
  Receipt Date: 20250127
  Transmission Date: 20250408
  Serious: Yes (Life-Threatening, Hospitalization, Other)
  Sender: DR REDDYS
  Company Number: None

PATIENT
  Age: 82 Year
  Sex: Male

DRUGS (5)
  1. AZACITIDINE [Suspect]
     Active Substance: AZACITIDINE
     Indication: Product used for unknown indication
     Route: 048
  2. VENETOCLAX [Suspect]
     Active Substance: VENETOCLAX
     Indication: Acute myeloid leukaemia
     Route: 048
  3. VENETOCLAX [Suspect]
     Active Substance: VENETOCLAX
     Route: 048
  4. VENETOCLAX [Suspect]
     Active Substance: VENETOCLAX
     Route: 048
  5. COVID 19 MRNA VACCINE [Concomitant]
     Indication: COVID-19 prophylaxis

REACTIONS (1)
  - Respiratory failure [Recovered/Resolved]
